FAERS Safety Report 10049479 (Version 2)
Quarter: 2014Q2

REPORT INFORMATION
  Report Type: Report from Study
  Country: JP (occurrence: JP)
  Receive Date: 20140401
  Receipt Date: 20140401
  Transmission Date: 20141212
  Serious: Yes (Hospitalization)
  Sender: FDA-Public Use
  Company Number: JP-SHIRE-ALL1-2013-08101

PATIENT
  Age: 62 Year
  Sex: Male

DRUGS (17)
  1. 405 (LANTHANUM CARBONATE) [Suspect]
     Indication: HYPERPHOSPHATAEMIA
     Dosage: 750 MG, UNKNOWN (DAILY DOSE)
     Route: 048
     Dates: start: 20110702
  2. 405 (LANTHANUM CARBONATE) [Suspect]
     Dosage: 750 MG, UNKNOWN (DAILY DOSE)
     Route: 048
     Dates: start: 20090828, end: 20110429
  3. 405 (LANTHANUM CARBONATE) [Suspect]
     Dosage: 1500 MG, UNKNOWN (DAILY DOSE)
     Route: 048
     Dates: start: 20110430, end: 20110701
  4. PHOSBLOCK [Concomitant]
     Indication: HYPERPHOSPHATAEMIA
     Dosage: 5250 MG, UNKNOWN
     Route: 048
     Dates: start: 20070402, end: 20091004
  5. PHOSBLOCK [Concomitant]
     Dosage: 3000 MG, UNKNOWN
     Route: 048
     Dates: start: 20091005
  6. CALTAN [Concomitant]
     Indication: HYPERPHOSPHATAEMIA
     Dosage: 3500 MG, UNKNOWN
     Route: 048
     Dates: start: 20070402
  7. CALTAN [Concomitant]
     Dosage: 3 G, UNKNOWN
     Route: 048
     Dates: end: 20130825
  8. CALTAN [Concomitant]
     Dosage: 2 G, UNKNOWN
     Route: 048
     Dates: start: 20130826
  9. PERSANTIN [Concomitant]
     Indication: PRODUCT USED FOR UNKNOWN INDICATION
     Dosage: 300 MG, UNKNOWN
     Route: 048
  10. KALIMATE [Concomitant]
     Indication: PRODUCT USED FOR UNKNOWN INDICATION
     Dosage: 5 G, UNKNOWN
     Route: 048
  11. BLOPRESS [Concomitant]
     Indication: PRODUCT USED FOR UNKNOWN INDICATION
     Dosage: 8 MG, UNKNOWN
     Route: 048
  12. ALLOZYM [Concomitant]
     Indication: PRODUCT USED FOR UNKNOWN INDICATION
     Dosage: 100 MG, UNKNOWN
     Route: 048
  13. GASTER D [Concomitant]
     Indication: PRODUCT USED FOR UNKNOWN INDICATION
     Dosage: 10 MG, UNKNOWN
     Route: 048
  14. MYSLEE [Concomitant]
     Indication: PRODUCT USED FOR UNKNOWN INDICATION
     Dosage: 10 MG, UNKNOWN
     Route: 048
  15. MILTAX [Concomitant]
     Indication: PRODUCT USED FOR UNKNOWN INDICATION
     Dosage: 30 MG, UNKNOWN
     Route: 062
  16. NESP [Concomitant]
     Indication: PRODUCT USED FOR UNKNOWN INDICATION
     Dosage: 30 ?G, 1X/WEEK
     Route: 042
  17. KIKLIN [Concomitant]
     Indication: HYPERPHOSPHATAEMIA
     Dosage: 3 G, UNKNOWN
     Route: 048
     Dates: start: 20121109

REACTIONS (3)
  - Lower limb fracture [Recovered/Resolved]
  - Foot fracture [Recovered/Resolved]
  - Fall [Recovered/Resolved]
